FAERS Safety Report 17854623 (Version 1)
Quarter: 2020Q2

REPORT INFORMATION
  Report Type: Spontaneous
  Country: US (occurrence: US)
  Receive Date: 20200603
  Receipt Date: 20200603
  Transmission Date: 20200714
  Serious: Yes (Life-Threatening, Hospitalization)
  Sender: FDA-Public Use
  Company Number: US-MYLANLABS-2020M1053105

PATIENT
  Age: 63 Year
  Sex: Female

DRUGS (1)
  1. LISINOPRIL. [Suspect]
     Active Substance: LISINOPRIL
     Indication: HYPERTENSION
     Dosage: UNK
     Route: 065

REACTIONS (7)
  - Pneumonia [Recovering/Resolving]
  - Hypoxia [Recovering/Resolving]
  - Angioedema [Recovering/Resolving]
  - Aspiration [Recovering/Resolving]
  - Haemoptysis [Recovering/Resolving]
  - Unresponsive to stimuli [Recovering/Resolving]
  - Pulseless electrical activity [Recovering/Resolving]
